FAERS Safety Report 16279408 (Version 1)
Quarter: 2019Q2

REPORT INFORMATION
  Report Type: Spontaneous
  Country: NL (occurrence: NL)
  Receive Date: 20190507
  Receipt Date: 20190507
  Transmission Date: 20190711
  Serious: Yes (Other)
  Sender: FDA-Public Use
  Company Number: NL-SUN PHARMACEUTICAL INDUSTRIES LTD-2019RR-207118

PATIENT
  Age: 85 Year
  Sex: Male
  Weight: 80 kg

DRUGS (8)
  1. METOPROLOL SUCC RET 50MG METOPROLOL TABLET MGA  50MG (SUCCINAAT) [Concomitant]
     Indication: PRODUCT USED FOR UNKNOWN INDICATION
     Dosage: ()
     Route: 065
  2. PANTOPRAZOL 40MGPANTOPRAZOL TABLET MSR 40MG [Concomitant]
     Indication: PRODUCT USED FOR UNKNOWN INDICATION
     Dosage: 1DD1
     Route: 065
  3. BICALUTAMIDE. [Suspect]
     Active Substance: BICALUTAMIDE
     Indication: PROSTATE CANCER METASTATIC
     Dosage: 1 DD 2 TABLETTEN
     Route: 050
     Dates: start: 20190321
  4. MOVICOLON MOVICOLON POEDER VOOR DRANK IN SACHETMACROGOL/ZOUTEN PDR V [Concomitant]
     Indication: PRODUCT USED FOR UNKNOWN INDICATION
     Dosage: 1 DOSAGE FORM, UNK
     Route: 065
  5. TEMAZEPAM TEMAZEPAM [Concomitant]
     Active Substance: TEMAZEPAM
     Indication: PRODUCT USED FOR UNKNOWN INDICATION
     Dosage: 1 DOSAGE FORM, UNK
     Route: 065
  6. CLOPIDOGREL 75 MGCLOPIDOGREL TABLET   75MG [Concomitant]
     Indication: PRODUCT USED FOR UNKNOWN INDICATION
     Dosage: ()
     Route: 065
     Dates: start: 20190313
  7. PARACETAMOL 1000MG PARACETAMOL TABLET 1000MG [Concomitant]
     Indication: PRODUCT USED FOR UNKNOWN INDICATION
     Dosage: 3DD1000MG
     Route: 065
  8. DEVARON DEVARON TABLET 400IECOLECALCIFEROL TABLET   400IE [Concomitant]
     Indication: PRODUCT USED FOR UNKNOWN INDICATION
     Dosage: 800IE, UNK
     Route: 065

REACTIONS (1)
  - Type 2 diabetes mellitus [Recovering/Resolving]

NARRATIVE: CASE EVENT DATE: 20190323
